FAERS Safety Report 23171322 (Version 1)
Quarter: 2023Q4

REPORT INFORMATION
  Report Type: Spontaneous
  Country: US (occurrence: US)
  Receive Date: 20231110
  Receipt Date: 20231110
  Transmission Date: 20240109
  Serious: No
  Sender: FDA-Public Use
  Company Number: US-SA-SAC20231107001078

PATIENT
  Sex: Female
  Weight: 74.842 kg

DRUGS (2)
  1. DUPIXENT [Suspect]
     Active Substance: DUPILUMAB
     Indication: Gastrooesophageal reflux disease
     Dosage: 300 MG, QW
     Route: 058
  2. DUPIXENT [Suspect]
     Active Substance: DUPILUMAB
     Indication: Oesophageal obstruction

REACTIONS (6)
  - Vomiting [Unknown]
  - Injection site pain [Unknown]
  - Feeling abnormal [Unknown]
  - Brain fog [Unknown]
  - Injection site erythema [Unknown]
  - Product use in unapproved indication [Unknown]
